FAERS Safety Report 6819830-1 (Version None)
Quarter: 2010Q3

REPORT INFORMATION
  Report Type: 
  Country: None (occurrence: None)
  Receive Date: 20100707
  Receipt Date: 20100623
  Transmission Date: 20110219
  Serious: Yes (Death)
  Sender: FDA-Public Use
  Company Number: IT-GENZYME-CERZ-1001368

PATIENT

DRUGS (2)
  1. CEREZYME [Suspect]
     Indication: GAUCHER'S DISEASE
     Dosage: 2400 U, Q4W
     Route: 042
     Dates: start: 20100401, end: 20100626
  2. CEREZYME [Suspect]
     Dosage: 3200 U, Q4W
     Route: 042
     Dates: start: 19970101, end: 20100301

REACTIONS (2)
  - DISEASE PROGRESSION [None]
  - ENCEPHALITIS [None]
